FAERS Safety Report 4988765-1 (Version None)
Quarter: 2006Q2

REPORT INFORMATION
  Report Type: 
  Country: None (occurrence: None)
  Receive Date: 20060502
  Receipt Date: 20050104
  Transmission Date: 20061013
  Serious: Yes (Death, Hospitalization)
  Sender: FDA-Public Use
  Company Number: US-MERCK-0501USA00152

PATIENT
  Age: 70 Year
  Sex: Female

DRUGS (5)
  1. VIOXX [Suspect]
     Route: 048
     Dates: start: 20030201, end: 20041001
  2. ZOLOFT [Concomitant]
     Route: 065
  3. XANAX [Concomitant]
     Route: 065
  4. QUININE [Concomitant]
     Route: 065
  5. HUMULIN 70/30 [Concomitant]
     Route: 065

REACTIONS (11)
  - ASTHENIA [None]
  - CARDIAC FAILURE CONGESTIVE [None]
  - CARDIOMYOPATHY ALCOHOLIC [None]
  - CARDIOPULMONARY FAILURE [None]
  - FLUID RETENTION [None]
  - HYPERTENSION [None]
  - HYPERVOLAEMIA [None]
  - HYPONATRAEMIA [None]
  - NAUSEA [None]
  - RESPIRATORY FAILURE [None]
  - VOMITING [None]
